FAERS Safety Report 11468245 (Version 2)
Quarter: 2015Q3

REPORT INFORMATION
  Report Type: Spontaneous
  Country: US (occurrence: US)
  Receive Date: 20150903
  Receipt Date: 20150903
  Transmission Date: 20151125
  Serious: No
  Sender: FDA-Public Use
  Company Number: US-ELI_LILLY_AND_COMPANY-US201108006163

PATIENT
  Age: 33 Year
  Sex: Female

DRUGS (11)
  1. RHOGAM [Concomitant]
     Active Substance: HUMAN RHO(D) IMMUNE GLOBULIN
  2. CYMBALTA [Suspect]
     Active Substance: DULOXETINE HYDROCHLORIDE
     Dosage: 60 MG, QD
     Dates: start: 20090410, end: 201102
  3. CYMBALTA [Suspect]
     Active Substance: DULOXETINE HYDROCHLORIDE
     Dosage: 120 MG, QD
     Dates: start: 20110811
  4. SLOW-FE [Concomitant]
  5. ANTIDEPRESSANTS [Concomitant]
     Active Substance: UNSPECIFIED INGREDIENT
     Indication: DEPRESSION
  6. CYMBALTA [Suspect]
     Active Substance: DULOXETINE HYDROCHLORIDE
     Indication: DEPRESSION
     Dosage: 60 MG, QD
     Dates: end: 200808
  7. TOPAMAX [Concomitant]
     Active Substance: TOPIRAMATE
  8. PRENATAL VITAMINS                  /01549301/ [Concomitant]
     Active Substance: VITAMINS
  9. TUMS [Concomitant]
     Active Substance: CALCIUM CARBONATE
  10. TREXIMET [Concomitant]
     Active Substance: NAPROXEN SODIUM\SUMATRIPTAN SUCCINATE
  11. CYMBALTA [Suspect]
     Active Substance: DULOXETINE HYDROCHLORIDE
     Dosage: 90 MG, QD
     Dates: start: 201102, end: 20110810

REACTIONS (17)
  - Mononucleosis syndrome [Unknown]
  - Headache [Unknown]
  - Insomnia [Unknown]
  - Feeling abnormal [Unknown]
  - Depression [Unknown]
  - Drug effect decreased [Unknown]
  - Stress [Unknown]
  - Exposure during pregnancy [Recovered/Resolved]
  - Immune system disorder [Unknown]
  - Crying [Unknown]
  - Irritability [Unknown]
  - Agitation [Unknown]
  - Gallbladder disorder [Unknown]
  - Migraine [Unknown]
  - Dizziness [Unknown]
  - Gait disturbance [Unknown]
  - Hypersomnia [Recovered/Resolved]

NARRATIVE: CASE EVENT DATE: 200807
